FAERS Safety Report 13747371 (Version 1)
Quarter: 2017Q3

REPORT INFORMATION
  Report Type: Spontaneous
  Country: US (occurrence: US)
  Receive Date: 20170712
  Receipt Date: 20170712
  Transmission Date: 20171127
  Serious: No
  Sender: FDA-Public Use
  Company Number: US-VIRTUS PHARMACEUTICALS, LLC-2016VTS00049

PATIENT
  Sex: Female

DRUGS (3)
  1. PROGESTERONE 500 MG (TEVA BRAND) [Suspect]
     Active Substance: PROGESTERONE
  2. PROGESTERONE 500 MG (AKORN BRAND) [Suspect]
     Active Substance: PROGESTERONE
  3. PROGESTERONE. [Suspect]
     Active Substance: PROGESTERONE

REACTIONS (4)
  - Drug ineffective [Recovered/Resolved]
  - Night sweats [Recovered/Resolved]
  - Insomnia [Recovered/Resolved]
  - Product substitution issue [None]
